FAERS Safety Report 15880562 (Version 2)
Quarter: 2019Q2

REPORT INFORMATION
  Report Type: Spontaneous
  Country: IT (occurrence: IT)
  Receive Date: 20190128
  Receipt Date: 20190610
  Transmission Date: 20190711
  Serious: Yes (Death)
  Sender: FDA-Public Use
  Company Number: IT-JNJFOC-20190132465

PATIENT
  Age: 84 Year
  Sex: Male
  Weight: 60 kg

DRUGS (1)
  1. RISPERDAL [Suspect]
     Active Substance: RISPERIDONE
     Indication: PSYCHOMOTOR HYPERACTIVITY
     Route: 048
     Dates: start: 20181012, end: 20181224

REACTIONS (8)
  - Blood creatinine increased [Fatal]
  - Jaundice [Fatal]
  - Somnolence [Fatal]
  - Anuria [Fatal]
  - Blood electrolytes abnormal [Fatal]
  - Platelet count decreased [Fatal]
  - Transaminases increased [Fatal]
  - Azotaemia [Fatal]

NARRATIVE: CASE EVENT DATE: 20181227
